FAERS Safety Report 5196433-9 (Version None)
Quarter: 2006Q4

REPORT INFORMATION
  Report Type: 
  Country: None (occurrence: None)
  Receive Date: 20061222
  Receipt Date: 20061213
  Transmission Date: 20070319
  Serious: Yes (Hospitalization)
  Sender: FDA-Public Use
  Company Number: 2006-03210

PATIENT
  Age: 61 Year
  Sex: Male
  Weight: 80 kg

DRUGS (8)
  1. VELCADE [Suspect]
     Indication: PERIPHERAL T-CELL LYMPHOMA UNSPECIFIED
     Dosage: 3.00 MG, INTRAVENOUS
     Route: 042
     Dates: start: 20050413, end: 20060428
  2. CYCLOPHOSPHAMIDE [Suspect]
     Indication: PERIPHERAL T-CELL LYMPHOMA UNSPECIFIED
     Dosage: 2300.00 MG, INTRAVENOUS
     Route: 042
     Dates: start: 20060413, end: 20060428
  3. DOXORUBICIN HCL [Suspect]
     Indication: PERIPHERAL T-CELL LYMPHOMA UNSPECIFIED
     Dosage: 140.00 MG, INTRAVENOUS
     Route: 042
     Dates: start: 20060413, end: 20060428
  4. ELDISINE [Suspect]
     Indication: PERIPHERAL T-CELL LYMPHOMA UNSPECIFIED
     Dosage: 3.80 MG, INTRAVENOUS
     Route: 042
     Dates: start: 20060413, end: 20060428
  5. BLEOMYCIN [Suspect]
     Indication: PERIPHERAL T-CELL LYMPHOMA UNSPECIFIED
     Dosage: 10.00 MG, INTRAVENOUS
     Route: 042
     Dates: start: 20060413, end: 20060428
  6. METHOTREXATE [Suspect]
     Indication: PERIPHERAL T-CELL LYMPHOMA UNSPECIFIED
     Dosage: 15.00 MG, INTRATHECAL
     Route: 039
     Dates: start: 20060413, end: 20060428
  7. PREDNISONE [Suspect]
     Indication: PERIPHERAL T-CELL LYMPHOMA UNSPECIFIED
     Dosage: 120.00 MG, ORAL
     Route: 048
     Dates: start: 20060413, end: 20060417
  8. GRANOCYTE 13-34 (LENOGRASTIM) [Suspect]
     Indication: PERIPHERAL T-CELL LYMPHOMA UNSPECIFIED
     Dosage: 263.00 UG, SUBCUTANEOUS
     Route: 058
     Dates: start: 20060418, end: 20060428

REACTIONS (1)
  - STAPHYLOCOCCAL INFECTION [None]
